FAERS Safety Report 20774197 (Version 1)
Quarter: 2022Q2

REPORT INFORMATION
  Report Type: Spontaneous
  Country: FR (occurrence: FR)
  Receive Date: 20220502
  Receipt Date: 20220502
  Transmission Date: 20220721
  Serious: Yes (Other)
  Sender: FDA-Public Use
  Company Number: None

PATIENT
  Age: 73 Year
  Sex: Female
  Weight: 69 kg

DRUGS (11)
  1. GABAPENTIN [Suspect]
     Active Substance: GABAPENTIN
     Indication: Post herpetic neuralgia
     Dosage: 600 MILLIGRAM, QD
     Route: 048
     Dates: start: 20211122, end: 20211124
  2. GABAPENTIN [Suspect]
     Active Substance: GABAPENTIN
     Dosage: 900 MILLIGRAM, QD
     Route: 048
     Dates: start: 20211125, end: 20211127
  3. GABAPENTIN [Suspect]
     Active Substance: GABAPENTIN
     Dosage: 1200 MILLIGRAM, QD
     Route: 048
     Dates: start: 20211128, end: 20220124
  4. Reselip [Concomitant]
     Dosage: UNK (10/10 MG: 1/D 1/2)
  5. LOSARTAN [Concomitant]
     Active Substance: LOSARTAN
     Dosage: 100 MILLIGRAM, QD (1/D)
  6. ACEBUTOLOL [Concomitant]
     Active Substance: ACEBUTOLOL
     Dosage: 0.25 DOSAGE FORM, QD (1/4 TAB/D)
  7. KARDEGIC [Concomitant]
     Active Substance: ASPIRIN DL-LYSINE
     Dosage: 1 DOSAGE FORM, QD
  8. CHOLECALCIFEROL [Concomitant]
     Active Substance: CHOLECALCIFEROL
     Dosage: UNK, MONTHLY (1 BULB/MONTH)
  9. DAFALGAN [Concomitant]
     Active Substance: ACETAMINOPHEN
     Dosage: UNK, PRN (IF NEEDED)
  10. AVOCADO OIL\SOYBEAN OIL [Concomitant]
     Active Substance: AVOCADO OIL\SOYBEAN OIL
     Dosage: 300 MILLIGRAM, QD (UNSAPONIFIABLE OIL: 1/D)
  11. Structum [Concomitant]
     Dosage: 1 DOSAGE FORM, QD

REACTIONS (1)
  - Hepatitis [Recovered/Resolved]

NARRATIVE: CASE EVENT DATE: 20220122
